FAERS Safety Report 7317024-7 (Version None)
Quarter: 2011Q1

REPORT INFORMATION
  Report Type: 
  Country: None (occurrence: None)
  Receive Date: 20110226
  Receipt Date: 20100916
  Transmission Date: 20110831
  Serious: No
  Sender: FDA-Public Use
  Company Number: US-ALLERGAN-1012026US

PATIENT
  Age: 49 Year
  Sex: Male

DRUGS (3)
  1. BOTOX COSMETIC [Suspect]
     Dosage: 23 UNK, UNK
     Route: 030
     Dates: start: 20100805, end: 20100805
  2. BOTOX COSMETIC [Suspect]
     Dosage: 33 UNK, SINGLE
     Route: 030
     Dates: start: 20100826, end: 20100826
  3. BOTOX COSMETIC [Suspect]
     Indication: SKIN WRINKLING
     Dosage: 66 UNITS, SINGLE
     Route: 030
     Dates: start: 20100720, end: 20100720

REACTIONS (1)
  - DRUG INEFFECTIVE [None]
